FAERS Safety Report 6347723-5 (Version None)
Quarter: 2009Q3

REPORT INFORMATION
  Report Type: 
  Country: None (occurrence: None)
  Receive Date: 20090910
  Receipt Date: 20090828
  Transmission Date: 20100115
  Serious: Yes (Other)
  Sender: FDA-Public Use
  Company Number: AU-PFIZER INC-2009260894

PATIENT

DRUGS (2)
  1. CHAMPIX [Suspect]
     Dosage: 0.5 MG, UNK
     Route: 048
  2. LAMOTRIGINE [Concomitant]
     Indication: BIPOLAR DISORDER

REACTIONS (9)
  - ABNORMAL DREAMS [None]
  - AGITATION [None]
  - ANXIETY [None]
  - BIPOLAR DISORDER [None]
  - FATIGUE [None]
  - HEADACHE [None]
  - HUNGER [None]
  - LOGORRHOEA [None]
  - MOOD ALTERED [None]
